FAERS Safety Report 4307015-2 (Version None)
Quarter: 2004Q1

REPORT INFORMATION
  Report Type: 
  Country: None (occurrence: None)
  Receive Date: 20040225
  Receipt Date: 20040210
  Transmission Date: 20041129
  Serious: Yes (Life-Threatening, Hospitalization)
  Sender: FDA-Public Use
  Company Number: EWC040237968

PATIENT
  Age: 79 Year
  Sex: Female

DRUGS (6)
  1. FORSTEO (TERIPARATIDE) [Suspect]
     Indication: OSTEOPOROSIS
     Dosage: 20 UG
     Dates: start: 20040204, end: 20040204
  2. MOLSIDOLAT (MOLSIDOMINE) [Concomitant]
  3. ISOPTIN [Concomitant]
  4. TEBOFORTAN (GINKGO BILOBA) [Concomitant]
  5. PARIET (RABEPRAZOLE SODIUM) [Concomitant]
  6. NITROGLYCERIN [Concomitant]

REACTIONS (7)
  - ANAPHYLACTIC REACTION [None]
  - BLOOD PRESSURE INCREASED [None]
  - CHILLS [None]
  - DYSPNOEA [None]
  - FLUSHING [None]
  - NAUSEA [None]
  - TACHYCARDIA [None]
